FAERS Safety Report 7488037-X (Version None)
Quarter: 2011Q2

REPORT INFORMATION
  Report Type: 
  Country: None (occurrence: None)
  Receive Date: 20110511
  Receipt Date: 20110426
  Transmission Date: 20111010
  Serious: Yes (Death)
  Sender: FDA-Public Use
  Company Number: FK201100877

PATIENT
  Age: 54 Year
  Sex: Male

DRUGS (5)
  1. IDARUBICIN HCL [Suspect]
     Indication: ACUTE MYELOID LEUKAEMIA
  2. ETOPOSIDE [Suspect]
     Indication: ACUTE MYELOID LEUKAEMIA
  3. METHOTREXATE [Suspect]
     Indication: ACUTE MYELOID LEUKAEMIA
     Dosage: 12.5 MG, INTRATHECAL
     Route: 037
  4. CYTARABINE [Suspect]
     Indication: ACUTE MYELOID LEUKAEMIA
     Dosage: 30 MG
  5. HYDROCORTISONE [Suspect]
     Indication: ACUTE MYELOID LEUKAEMIA
     Dosage: 12.5 MG, INTRATHECAL
     Route: 037

REACTIONS (5)
  - FEBRILE NEUTROPENIA [None]
  - SEPTIC SHOCK [None]
  - SYSTEMIC MYCOSIS [None]
  - PYREXIA [None]
  - WHITE BLOOD CELL COUNT DECREASED [None]
